FAERS Safety Report 6812703-X (Version None)
Quarter: 2010Q3

REPORT INFORMATION
  Report Type: 
  Country: None (occurrence: None)
  Receive Date: 20100701
  Receipt Date: 20100618
  Transmission Date: 20110219
  Serious: Yes (Hospitalization)
  Sender: FDA-Public Use
  Company Number: A0787992A

PATIENT
  Age: 58 Year
  Sex: Male
  Weight: 86.4 kg

DRUGS (9)
  1. AVANDIA [Suspect]
     Dosage: 4MG PER DAY
     Route: 048
     Dates: start: 20020521, end: 20070703
  2. INSULIN [Concomitant]
  3. ZETIA [Concomitant]
  4. SYNTHROID [Concomitant]
  5. COREG [Concomitant]
  6. LISINOPRIL [Concomitant]
  7. LIPITOR [Concomitant]
  8. COZAAR [Concomitant]
  9. AMARYL [Concomitant]

REACTIONS (8)
  - BLINDNESS [None]
  - CARDIAC FAILURE CONGESTIVE [None]
  - CATARACT [None]
  - CORONARY ARTERY DISEASE [None]
  - DIABETIC COMPLICATION [None]
  - MYOCARDIAL INFARCTION [None]
  - OPTIC NERVE DISORDER [None]
  - VITREOUS HAEMORRHAGE [None]
